FAERS Safety Report 17840615 (Version 1)
Quarter: 2020Q2

REPORT INFORMATION
  Report Type: Spontaneous
  Country: CA (occurrence: CA)
  Receive Date: 20200529
  Receipt Date: 20200529
  Transmission Date: 20200714
  Serious: Yes (Hospitalization, Other)
  Sender: FDA-Public Use
  Company Number: CA-PFIZER INC-2020211054

PATIENT

DRUGS (1)
  1. CALCIUM CHLORIDE. [Suspect]
     Active Substance: CALCIUM CHLORIDE
     Dosage: UNK
     Route: 048

REACTIONS (5)
  - Product selection error [Recovered/Resolved]
  - Product use issue [Unknown]
  - Hypercalcaemia [Recovered/Resolved]
  - Off label use [Unknown]
  - Accidental overdose [Recovered/Resolved]
